FAERS Safety Report 18242643 (Version 1)
Quarter: 2020Q3

REPORT INFORMATION
  Report Type: Spontaneous
  Country: US (occurrence: US)
  Receive Date: 20200908
  Receipt Date: 20200908
  Transmission Date: 20201103
  Serious: Yes (Other)
  Sender: FDA-Public Use
  Company Number: US-GILEAD-2020-0493990

PATIENT
  Age: 64 Year
  Sex: Male
  Weight: 125.55 kg

DRUGS (22)
  1. DILTIAZEM. [Concomitant]
     Active Substance: DILTIAZEM
  2. FERROUS SULFATE. [Concomitant]
     Active Substance: FERROUS SULFATE
  3. ACETAMINOPHEN. [Concomitant]
     Active Substance: ACETAMINOPHEN
  4. DULOXETINE. [Concomitant]
     Active Substance: DULOXETINE
  5. POTASSIUM CHLORIDE. [Concomitant]
     Active Substance: POTASSIUM CHLORIDE
  6. PRECEDEX [Concomitant]
     Active Substance: DEXMEDETOMIDINE HYDROCHLORIDE
  7. LANTUS [Concomitant]
     Active Substance: INSULIN GLARGINE
  8. METHYLPREDNISOLONE. [Concomitant]
     Active Substance: METHYLPREDNISOLONE
  9. ASPIRIN (E.C.) [Concomitant]
     Active Substance: ASPIRIN
  10. ENOXAPARIN [Concomitant]
     Active Substance: ENOXAPARIN
  11. FUROSEMIDE. [Concomitant]
     Active Substance: FUROSEMIDE
  12. MAGNESIUM OXIDE. [Concomitant]
     Active Substance: MAGNESIUM OXIDE
  13. LYRICA [Concomitant]
     Active Substance: PREGABALIN
  14. DOCUSATE [Concomitant]
     Active Substance: DOCUSATE
  15. HALOPERIDOL. [Concomitant]
     Active Substance: HALOPERIDOL
  16. INSULIN LISPRO [Concomitant]
     Active Substance: INSULIN LISPRO
  17. LORAZEPAM. [Concomitant]
     Active Substance: LORAZEPAM
  18. SEROQUEL [Concomitant]
     Active Substance: QUETIAPINE FUMARATE
  19. REMDESIVIR. [Suspect]
     Active Substance: REMDESIVIR
     Indication: COVID-19
     Dosage: 200 MG, QD
     Route: 040
     Dates: start: 20200515, end: 20200519
  20. HYDRALAZINE [Concomitant]
     Active Substance: HYDRALAZINE HYDROCHLORIDE
  21. LACTOBACILLUS [Concomitant]
     Active Substance: LACTOBACILLUS ACIDOPHILUS
  22. TERAZOSIN [Concomitant]
     Active Substance: TERAZOSIN HYDROCHLORIDE

REACTIONS (3)
  - Vomiting [Unknown]
  - Hyperhidrosis [Unknown]
  - Hypotension [Unknown]

NARRATIVE: CASE EVENT DATE: 20200515
